FAERS Safety Report 8500836-1 (Version None)
Quarter: 2012Q2

REPORT INFORMATION
  Report Type: 
  Country: None (occurrence: None)
  Receive Date: 20120405
  Receipt Date: 20110405
  Transmission Date: 20120825
  Serious: Yes (Other)
  Sender: FDA-Public Use
  Company Number: PHHY2011US05809

PATIENT
  Age: 77 Year
  Sex: Female
  Weight: 52.8 kg

DRUGS (1)
  1. RECLAST [Suspect]
     Indication: OSTEOPOROSIS POSTMENOPAUSAL
     Dosage: 5 MG, INFUSION
     Dates: start: 20110120

REACTIONS (2)
  - INFUSION SITE SWELLING [None]
  - INFUSION SITE PAIN [None]
